FAERS Safety Report 9068943 (Version 1)
Quarter: 2013Q1

REPORT INFORMATION
  Report Type: Spontaneous
  Country: US (occurrence: None)
  Receive Date: 20130213
  Receipt Date: 20130213
  Transmission Date: 20140127
  Serious: Yes (Life-Threatening)
  Sender: FDA-Public Use
  Company Number: None

PATIENT
  Age: 69 Year
  Sex: Male
  Weight: 63.5 kg

DRUGS (1)
  1. CEFTRIAXONE [Suspect]
     Indication: ENDOCARDITIS
     Route: 042
     Dates: start: 20121102, end: 20121209

REACTIONS (1)
  - Pancytopenia [None]
